FAERS Safety Report 25147167 (Version 1)
Quarter: 2025Q2

REPORT INFORMATION
  Report Type: Spontaneous
  Country: KR (occurrence: KR)
  Receive Date: 20250401
  Receipt Date: 20250401
  Transmission Date: 20250717
  Serious: Yes (Hospitalization)
  Sender: APELLIS PHARMACEUTICALS
  Company Number: KR-BIOVITRUM-2025-KR-003791

PATIENT

DRUGS (1)
  1. EMPAVELI [Suspect]
     Active Substance: PEGCETACOPLAN
     Indication: Paroxysmal nocturnal haemoglobinuria
     Dosage: 1080.000MG BIW
     Route: 058
     Dates: start: 20241111

REACTIONS (2)
  - Back pain [Recovering/Resolving]
  - Inflammatory pain [Unknown]
